FAERS Safety Report 18331959 (Version 1)
Quarter: 2020Q3

REPORT INFORMATION
  Report Type: Spontaneous
  Country: US (occurrence: US)
  Receive Date: 20200930
  Receipt Date: 20200930
  Transmission Date: 20201103
  Serious: Yes (Other)
  Sender: FDA-Public Use
  Company Number: US-PFIZER INC-2020372872

PATIENT
  Sex: Female

DRUGS (2)
  1. DEPO?MEDROL [Suspect]
     Active Substance: METHYLPREDNISOLONE ACETATE
     Dosage: UNK
  2. ZILRETTA [Concomitant]
     Active Substance: TRIAMCINOLONE ACETONIDE
     Dosage: EVERY 3 MONTHS

REACTIONS (4)
  - Blood glucose increased [Unknown]
  - Diabetic retinopathy [Unknown]
  - Ocular vascular disorder [Unknown]
  - Cardiac disorder [Unknown]
